FAERS Safety Report 8302033-1 (Version None)
Quarter: 2012Q2

REPORT INFORMATION
  Report Type: 
  Country: None (occurrence: None)
  Receive Date: 20120420
  Receipt Date: 20120416
  Transmission Date: 20120825
  Serious: Yes (Hospitalization)
  Sender: FDA-Public Use
  Company Number: FR-MERCK-1204USA02537

PATIENT
  Age: 22 Year
  Sex: Male

DRUGS (9)
  1. DEPAKENE [Concomitant]
     Indication: IDIOPATHIC GENERALISED EPILEPSY
     Route: 048
     Dates: start: 20080101
  2. TEMAZEPAM [Concomitant]
     Route: 065
     Dates: end: 20111201
  3. LEVOLEUCOVORIN CALCIUM [Suspect]
     Indication: DRUG TOXICITY PROPHYLAXIS
     Route: 042
     Dates: start: 20111226
  4. URBANYL [Concomitant]
     Indication: IDIOPATHIC GENERALISED EPILEPSY
     Route: 048
     Dates: start: 20111101
  5. EMEND [Suspect]
     Indication: PROPHYLAXIS OF NAUSEA AND VOMITING
     Route: 048
     Dates: start: 20111226, end: 20111226
  6. EMEND [Suspect]
     Route: 048
     Dates: start: 20111227, end: 20111228
  7. SOLU-MEDROL [Suspect]
     Indication: PROPHYLAXIS OF NAUSEA AND VOMITING
     Route: 042
     Dates: start: 20111226, end: 20111226
  8. METHOTREXATE [Suspect]
     Indication: BONE SARCOMA
     Route: 042
     Dates: start: 20111226
  9. OXYCONTIN [Concomitant]
     Route: 065
     Dates: start: 20111101, end: 20120101

REACTIONS (1)
  - CONVULSION [None]
